FAERS Safety Report 8169361-4 (Version None)
Quarter: 2012Q1

REPORT INFORMATION
  Report Type: 
  Country: None (occurrence: None)
  Receive Date: 20120222
  Receipt Date: 20120210
  Transmission Date: 20120608
  Serious: Yes (Other)
  Sender: FDA-Public Use
  Company Number: 1195005

PATIENT
  Age: 69 Year
  Sex: Male
  Weight: 48 kg

DRUGS (7)
  1. SEVOFLURANE [Suspect]
     Indication: GENERAL ANAESTHESIA
     Dosage: 1-3% X 1, RESPIRATORY
     Dates: start: 20120116, end: 20120116
  2. DOPAMINE HCL [Concomitant]
  3. DIAZEPAM [Concomitant]
  4. ROCURONIUM BROMIDE [Concomitant]
  5. DEXMEDETOMIDINE HYDROCHLORIDE [Suspect]
     Indication: SEDATION
     Dosage: 0.3-0.4 MICROG/KG/HR X 1, INTRAVENOUS DRIP
     Route: 041
     Dates: start: 20120116, end: 20120117
  6. DOBUPUM [Concomitant]
  7. FENTANYL [Concomitant]

REACTIONS (2)
  - PERIPHERAL CIRCULATORY FAILURE [None]
  - HYPERTHERMIA MALIGNANT [None]
